FAERS Safety Report 6781429-3 (Version None)
Quarter: 2010Q2

REPORT INFORMATION
  Report Type: 
  Country: None (occurrence: None)
  Receive Date: 20100617
  Receipt Date: 20100617
  Transmission Date: 20101027
  Serious: No
  Sender: FDA-Public Use
  Company Number: None

PATIENT
  Age: 61 Year
  Sex: Female

DRUGS (5)
  1. OMEPRAZOLE [Suspect]
     Indication: GASTROOESOPHAGEAL REFLUX DISEASE
     Dosage: ONE CAPSULE BY MOUTH THREE TIMES A DAY
     Dates: start: 20100113
  2. OMEPRAZOLE [Suspect]
     Indication: ULCER
     Dosage: ONE CAPSULE BY MOUTH THREE TIMES A DAY
     Dates: start: 20100113
  3. VENTOLIN HFA [Concomitant]
  4. FLUCONAZOLE [Concomitant]
  5. ADVAIR DISKUS 100/50 [Concomitant]

REACTIONS (1)
  - DRUG INEFFECTIVE [None]
